FAERS Safety Report 11736899 (Version 1)
Quarter: 2015Q4

REPORT INFORMATION
  Report Type: Spontaneous
  Country: US (occurrence: US)
  Receive Date: 20151110
  Receipt Date: 20151110
  Transmission Date: 20160304
  Serious: No
  Sender: FDA-Public Use
  Company Number: US-ELI_LILLY_AND_COMPANY-US201201006786

PATIENT
  Sex: Female

DRUGS (3)
  1. FORTEO [Suspect]
     Active Substance: TERIPARATIDE
     Dosage: 20 UG, QD
     Route: 065
  2. FORTEO [Suspect]
     Active Substance: TERIPARATIDE
     Dosage: 20 UG, QD
     Route: 065
  3. FORTEO [Suspect]
     Active Substance: TERIPARATIDE
     Indication: OSTEOPOROSIS
     Dosage: 20 UG, QD
     Route: 065
     Dates: start: 201111

REACTIONS (11)
  - Energy increased [Unknown]
  - Cough [Recovered/Resolved]
  - Cow^s milk intolerance [Unknown]
  - Nasal congestion [Unknown]
  - Rhinorrhoea [Unknown]
  - Pruritus [Unknown]
  - Productive cough [Not Recovered/Not Resolved]
  - Dry skin [Unknown]
  - Multiple allergies [Not Recovered/Not Resolved]
  - Hypertension [Recovered/Resolved]
  - Incorrect product storage [Unknown]
